FAERS Safety Report 25861601 (Version 2)
Quarter: 2025Q4

REPORT INFORMATION
  Report Type: Report from Study
  Country: IL (occurrence: IL)
  Receive Date: 20250930
  Receipt Date: 20251018
  Transmission Date: 20260117
  Serious: Yes (Hospitalization)
  Sender: ABBVIE
  Company Number: IL-ABBVIE-6479814

PATIENT
  Age: 55 Year
  Sex: Male

DRUGS (1)
  1. SKYRIZI [Suspect]
     Active Substance: RISANKIZUMAB-RZAA
     Indication: Psoriatic arthropathy
     Dosage: DOSE FORM: SOLUTION FOR INJECTION IN PRE-FILLED PEN?150MG?LAST ADMIN DATE: 2025
     Route: 058
     Dates: start: 20250310

REACTIONS (5)
  - Head discomfort [Not Recovered/Not Resolved]
  - Headache [Unknown]
  - Ocular discomfort [Not Recovered/Not Resolved]
  - Fluid retention [Unknown]
  - Pyrexia [Recovered/Resolved]

NARRATIVE: CASE EVENT DATE: 20250101
